FAERS Safety Report 9820089 (Version 1)
Quarter: 2014Q1

REPORT INFORMATION
  Report Type: Other
  Country: BR (occurrence: BR)
  Receive Date: 20140116
  Receipt Date: 20140116
  Transmission Date: 20141002
  Serious: Yes (Other)
  Sender: FDA-Public Use
  Company Number: BR-US-EMD SERONO, INC.-7261515

PATIENT
  Age: 32 Year
  Sex: Female

DRUGS (1)
  1. FOLLITROPIN ALFA [Suspect]
     Indication: OVULATION INDUCTION

REACTIONS (1)
  - Endometritis [Unknown]
